FAERS Safety Report 6233180-6 (Version None)
Quarter: 2009Q2

REPORT INFORMATION
  Report Type: 
  Country: None (occurrence: None)
  Receive Date: 20090617
  Receipt Date: 20090608
  Transmission Date: 20091009
  Serious: Yes (Hospitalization)
  Sender: FDA-Public Use
  Company Number: HU-B.I. PHARMACEUTICALS,INC./RIDGEFIELD-2009-BP-07084BP

PATIENT
  Age: 39 Year
  Sex: Male

DRUGS (4)
  1. MELOXICAM [Suspect]
     Indication: INTERVERTEBRAL DISC PROTRUSION
     Dosage: 30MG
  2. DICLOFENAC SODIUM [Suspect]
     Indication: INTERVERTEBRAL DISC PROTRUSION
     Dosage: 150MG
  3. ASPIRIN [Suspect]
     Indication: ANTIPLATELET THERAPY
     Dosage: 100MG
  4. CLOPIDOGREL BISULFATE [Suspect]
     Indication: ANTIPLATELET THERAPY
     Dosage: 75MG

REACTIONS (2)
  - DRUG INTERACTION [None]
  - THROMBOSIS IN DEVICE [None]
